FAERS Safety Report 11620752 (Version 1)
Quarter: 2015Q4

REPORT INFORMATION
  Report Type: Spontaneous
  Country: US (occurrence: US)
  Receive Date: 20151012
  Receipt Date: 20151012
  Transmission Date: 20160304
  Serious: Yes (Other)
  Sender: FDA-Public Use
  Company Number: US-PFIZER INC-2015328262

PATIENT
  Age: 61 Year
  Sex: Female

DRUGS (1)
  1. GLIPIZIDE XL [Suspect]
     Active Substance: GLIPIZIDE
     Indication: DIABETIC NEUROPATHY
     Dosage: 5 MG, DAILY (2.5MG, 2 TABLETS DAILY)
     Dates: start: 20150409

REACTIONS (1)
  - Diabetic neuropathy [Unknown]
